FAERS Safety Report 7805986-0 (Version None)
Quarter: 2011Q4

REPORT INFORMATION
  Report Type: 
  Country: None (occurrence: None)
  Receive Date: 20111011
  Receipt Date: 20110928
  Transmission Date: 20120403
  Serious: Yes (Other)
  Sender: FDA-Public Use
  Company Number: US-RANBAXY-2011US-48766

PATIENT

DRUGS (4)
  1. CALAN [Suspect]
     Dosage: 40 MG, BID
     Route: 048
     Dates: start: 20110601
  2. CALAN [Suspect]
     Indication: HYPERTENSION
     Dosage: TWO 40 MG DOSES IN AM AND 120 MG DOSE IN PM
     Route: 048
     Dates: end: 20110501
  3. ESOMEPRAZOLE SODIUM [Concomitant]
     Indication: GASTROOESOPHAGEAL REFLUX DISEASE
     Dosage: UNK, UNK
     Route: 065
  4. VERAPAMIL [Suspect]
     Indication: HYPERTENSION
     Dosage: 120 MG, QD
     Route: 042
     Dates: start: 20110501

REACTIONS (6)
  - ABASIA [None]
  - BLOOD PRESSURE INCREASED [None]
  - DIZZINESS [None]
  - FATIGUE [None]
  - ABDOMINAL DISCOMFORT [None]
  - SOMNOLENCE [None]
